FAERS Safety Report 6162851-5 (Version None)
Quarter: 2009Q2

REPORT INFORMATION
  Report Type: 
  Country: None (occurrence: None)
  Receive Date: 20090421
  Receipt Date: 20081028
  Transmission Date: 20091009
  Serious: No
  Sender: FDA-Public Use
  Company Number: US-ASTRAZENECA-2008UW24133

PATIENT
  Age: 49 Year
  Sex: Female

DRUGS (4)
  1. TOPROL-XL [Suspect]
     Indication: ATRIAL FIBRILLATION
     Route: 048
     Dates: start: 20050101
  2. EFFEXOR [Concomitant]
  3. BYETTA [Concomitant]
  4. SINGULAIR [Concomitant]

REACTIONS (2)
  - DRUG ADMINISTRATION ERROR [None]
  - TREMOR [None]
